FAERS Safety Report 6395712-7 (Version None)
Quarter: 2009Q4

REPORT INFORMATION
  Report Type: 
  Country: None (occurrence: None)
  Receive Date: 20091007
  Receipt Date: 20090923
  Transmission Date: 20100525
  Serious: Yes (Other)
  Sender: FDA-Public Use
  Company Number: 231720K09USA

PATIENT
  Age: 41 Year
  Sex: Female
  Weight: 61 kg

DRUGS (12)
  1. REBIF [Suspect]
     Indication: MULTIPLE SCLEROSIS
     Dosage: 44 MCG, 3 IN 1 WEEKS, SUBCUTANEOUS, 44 MCG, 3 IN 1 WEEKS, SUBCUTANEOUS
     Route: 058
     Dates: start: 20080901, end: 20090101
  2. REBIF [Suspect]
     Indication: MULTIPLE SCLEROSIS
     Dosage: 44 MCG, 3 IN 1 WEEKS, SUBCUTANEOUS, 44 MCG, 3 IN 1 WEEKS, SUBCUTANEOUS
     Route: 058
     Dates: start: 20090101, end: 20090301
  3. LEXAPRO [Concomitant]
  4. MULTI-VITAMINS [Concomitant]
  5. CALCIUM (CALCIUM-SANDOZ) [Concomitant]
  6. VITAMIN D [Concomitant]
  7. ZYRTEC [Concomitant]
  8. IMODIUM [Concomitant]
  9. ALEVE [Concomitant]
  10. ACTONEL [Concomitant]
  11. SYNTHROID [Concomitant]
  12. BETA CAROTENE (BETACAROTENE) [Concomitant]

REACTIONS (1)
  - LUNG NEOPLASM [None]
